FAERS Safety Report 20489036 (Version 1)
Quarter: 2022Q1

REPORT INFORMATION
  Report Type: Spontaneous
  Country: US (occurrence: US)
  Receive Date: 20220218
  Receipt Date: 20220218
  Transmission Date: 20220423
  Serious: No
  Sender: FDA-Public Use
  Company Number: US-BIOCON-BCN-2021-001033

PATIENT
  Age: 80 Year
  Sex: Female
  Weight: 57.658 kg

DRUGS (2)
  1. EVEROLIMUS [Suspect]
     Active Substance: EVEROLIMUS
     Indication: Breast cancer
     Dates: start: 202108
  2. MEGESTROL [Concomitant]
     Active Substance: MEGESTROL
     Indication: Product used for unknown indication

REACTIONS (2)
  - Accidental exposure to product packaging [Unknown]
  - No adverse event [Unknown]
